FAERS Safety Report 8608983-0 (Version None)
Quarter: 2012Q3

REPORT INFORMATION
  Report Type: 
  Country: None (occurrence: None)
  Receive Date: 20120821
  Receipt Date: 20120810
  Transmission Date: 20120928
  Serious: Yes (Hospitalization)
  Sender: FDA-Public Use
  Company Number: US-GLAXOSMITHKLINE-A0989076A

PATIENT
  Age: 81 Year
  Sex: Female

DRUGS (4)
  1. CONCURRENT MEDICATIONS [Concomitant]
  2. NEBULIZER [Concomitant]
  3. FLUTICASONE PROPIONATE [Suspect]
     Indication: CHRONIC OBSTRUCTIVE PULMONARY DISEASE
     Dosage: 1PUFF TWICE PER DAY
     Route: 055
     Dates: start: 20000801
  4. OXYGEN [Concomitant]

REACTIONS (4)
  - LUNG INFECTION [None]
  - DYSPNOEA [None]
  - HYPERTENSION [None]
  - HEART RATE DECREASED [None]
